FAERS Safety Report 6147668-X (Version None)
Quarter: 2009Q2

REPORT INFORMATION
  Report Type: 
  Country: None (occurrence: None)
  Receive Date: 20090402
  Receipt Date: 20080409
  Transmission Date: 20091009
  Serious: Yes (Other)
  Sender: FDA-Public Use
  Company Number: US-WYE-H03601408

PATIENT
  Age: 40 Year
  Sex: Female
  Weight: 54.48 kg

DRUGS (2)
  1. ALAVERT [Suspect]
     Indication: HYPERSENSITIVITY
     Dosage: 1 TABLET 1X PER 1 DAY, ORAL
     Route: 048
     Dates: start: 20080407, end: 20080408
  2. ELAVIL [Concomitant]

REACTIONS (2)
  - ANXIETY [None]
  - NERVOUSNESS [None]
